FAERS Safety Report 11417479 (Version 2)
Quarter: 2015Q4

REPORT INFORMATION
  Report Type: Spontaneous
  Country: GB (occurrence: GB)
  Receive Date: 20150825
  Receipt Date: 20151016
  Transmission Date: 20160304
  Serious: Yes (Hospitalization, Other)
  Sender: FDA-Public Use
  Company Number: GB-BAUSCH-BL-2015-019709

PATIENT
  Age: 27 Year
  Sex: Male

DRUGS (1)
  1. MINIMS TETRACAINE HYDROCHLORIDE 0.5% W/V EYE DROPS, SOLUTION [Suspect]
     Active Substance: TETRACAINE HYDROCHLORIDE
     Indication: OPHTHALMOLOGICAL EXAMINATION
     Route: 047
     Dates: start: 20150801, end: 20150801

REACTIONS (6)
  - Circulatory collapse [Recovered/Resolved]
  - Hypotension [Recovered/Resolved]
  - Unresponsive to stimuli [Recovered/Resolved]
  - Bradycardia [Not Recovered/Not Resolved]
  - Sinus arrhythmia [Unknown]
  - Heart rate decreased [Not Recovered/Not Resolved]

NARRATIVE: CASE EVENT DATE: 20150801
